FAERS Safety Report 20257682 (Version 1)
Quarter: 2021Q4

REPORT INFORMATION
  Report Type: Spontaneous
  Country: US (occurrence: US)
  Receive Date: 20211230
  Receipt Date: 20211230
  Transmission Date: 20220303
  Serious: Yes (Other)
  Sender: FDA-Public Use
  Company Number: US-TAKEDA-2021TUS081187

PATIENT
  Age: 77 Year
  Sex: Female
  Weight: 59 kg

DRUGS (8)
  1. GAMMAGARD LIQUID [Suspect]
     Active Substance: HUMAN IMMUNOGLOBULIN G
     Indication: Immunodeficiency common variable
     Dosage: 200 MILLIGRAM/KILOGRAM, MONTHLY
     Route: 042
     Dates: start: 20131111
  2. GAMMAGARD LIQUID [Suspect]
     Active Substance: HUMAN IMMUNOGLOBULIN G
     Dosage: 400 MILLIGRAM, MONTHLY
     Route: 042
     Dates: start: 201403
  3. MODERNA COVID-19 VACCINE [Concomitant]
     Active Substance: ELASOMERAN
     Indication: Product used for unknown indication
     Route: 065
  4. SPIRIVA [Concomitant]
     Active Substance: TIOTROPIUM BROMIDE MONOHYDRATE
     Indication: Chronic obstructive pulmonary disease
     Dosage: UNK, QD
     Route: 065
  5. ESTRING [Concomitant]
     Active Substance: ESTRADIOL
     Indication: Oestrogen deficiency
     Route: 065
  6. PREDNISONE [Concomitant]
     Active Substance: PREDNISONE
     Indication: Bronchitis
     Route: 065
  7. PREDNISONE [Concomitant]
     Active Substance: PREDNISONE
     Indication: Lymphadenopathy
  8. PREDNISONE [Concomitant]
     Active Substance: PREDNISONE
     Indication: Infection

REACTIONS (3)
  - Mycobacterium avium complex infection [Recovered/Resolved]
  - Drug ineffective [Unknown]
  - COVID-19 [Unknown]

NARRATIVE: CASE EVENT DATE: 20191001
